FAERS Safety Report 9645310 (Version 1)
Quarter: 2013Q4

REPORT INFORMATION
  Report Type: Spontaneous
  Country: US (occurrence: None)
  Receive Date: 20131023
  Receipt Date: 20131023
  Transmission Date: 20140711
  Serious: Yes (Disabling)
  Sender: FDA-Public Use
  Company Number: None

PATIENT
  Age: 65 Year
  Sex: Male
  Weight: 83.92 kg

DRUGS (9)
  1. METOCLOPRAMIDE [Suspect]
     Indication: DYSPEPSIA
     Route: 048
     Dates: start: 20121003, end: 20120628
  2. CLONAZEPAM [Concomitant]
  3. WELLBUTRIN XL [Concomitant]
  4. FOLIC ACID [Concomitant]
  5. PANTOPRAZOLE [Concomitant]
  6. NORVASC [Concomitant]
  7. MIRTAZAPINE [Concomitant]
  8. ESCITALOPRAM [Concomitant]
  9. STOOL SOFTENER [Concomitant]

REACTIONS (9)
  - Parkinson^s disease [None]
  - Depression [None]
  - Anxiety [None]
  - Restlessness [None]
  - Agitation [None]
  - Suicidal ideation [None]
  - Insomnia [None]
  - Dry mouth [None]
  - Oral discomfort [None]
